FAERS Safety Report 12144308 (Version 1)
Quarter: 2016Q1

REPORT INFORMATION
  Report Type: Spontaneous
  Country: US (occurrence: US)
  Receive Date: 20160304
  Receipt Date: 20160304
  Transmission Date: 20160526
  Serious: Yes (Other)
  Sender: FDA-Public Use
  Company Number: US-RECKITT BENCKISER HEALTHCARE INT LIMITED-RB-82685-2016

PATIENT

DRUGS (1)
  1. DELSYM [Suspect]
     Active Substance: DEXTROMETHORPHAN
     Indication: DRUG ABUSE
     Dosage: PATIENT COULD DOWN 1 OR 2 BOTTLES AND HAD TRIPPED HUNDREDS OF TIMES ON DELSYM SINCE AGE OF 14 OR 15
     Route: 065

REACTIONS (3)
  - Intentional overdose [Unknown]
  - Feeling abnormal [Unknown]
  - Drug abuse [Unknown]
